FAERS Safety Report 7562413-9 (Version None)
Quarter: 2011Q2

REPORT INFORMATION
  Report Type: 
  Country: None (occurrence: None)
  Receive Date: 20110621
  Receipt Date: 20110621
  Transmission Date: 20111010
  Serious: Yes (Hospitalization)
  Sender: FDA-Public Use
  Company Number: None

PATIENT
  Age: 2 Year
  Sex: Female
  Weight: 10.25 kg

DRUGS (1)
  1. ACTEMRA [Suspect]
     Dosage: 4 MG/KG ONCE IV
     Route: 042
     Dates: start: 20110325

REACTIONS (2)
  - CELLULITIS [None]
  - ABSCESS [None]
